FAERS Safety Report 17705027 (Version 5)
Quarter: 2021Q3

REPORT INFORMATION
  Report Type: Report from Study
  Country: FR (occurrence: FR)
  Receive Date: 20200424
  Receipt Date: 20210726
  Transmission Date: 20211014
  Serious: Yes (Hospitalization, Other)
  Sender: FDA-Public Use
  Company Number: FR-ADVANZ PHARMA-202004003546

PATIENT

DRUGS (8)
  1. ROCEPHINE [Concomitant]
     Active Substance: CEFTRIAXONE SODIUM
     Indication: COVID-19
     Dosage: UNK
     Dates: start: 20200323, end: 20200330
  2. SPIRAMYCINE [Concomitant]
     Active Substance: SPIRAMYCIN
     Indication: COVID-19
     Dosage: UNK
     Dates: start: 20200323, end: 20200326
  3. CEFAZOLIN [Concomitant]
     Active Substance: CEFAZOLIN
     Dosage: UNK
     Dates: start: 20200407, end: 20200412
  4. DEXAMETHASONE. [Concomitant]
     Active Substance: DEXAMETHASONE
     Dosage: UNK
     Dates: start: 20200410, end: 20200420
  5. CEFEPIME [Concomitant]
     Active Substance: CEFEPIME HYDROCHLORIDE
     Dosage: UNK
     Dates: start: 20200409, end: 20200412
  6. PARACETAMOL [Concomitant]
     Active Substance: ACETAMINOPHEN
     Indication: PYREXIA
     Dosage: UNK
     Dates: start: 20200326, end: 20200328
  7. HYDROXYCHLOROQUINE SULFATE (AUTHORIZED GENERIC),PLAQUENIL [Suspect]
     Active Substance: HYDROXYCHLOROQUINE SULFATE
     Indication: COVID-19
     Dosage: 400 MG, QD, GASTROENTERAL USE
     Dates: start: 20200325, end: 20200328
  8. ENOXAPARIN [Concomitant]
     Active Substance: ENOXAPARIN
     Dosage: UNK
     Dates: start: 20200324

REACTIONS (5)
  - Hepatic cytolysis [Recovered/Resolved]
  - Off label use [Unknown]
  - Coronavirus infection [Recovered/Resolved]
  - Acute kidney injury [Recovered/Resolved]
  - Pulmonary embolism [Recovered/Resolved]

NARRATIVE: CASE EVENT DATE: 20200326
